FAERS Safety Report 6824393-0 (Version None)
Quarter: 2010Q3

REPORT INFORMATION
  Report Type: 
  Country: None (occurrence: None)
  Receive Date: 20100708
  Receipt Date: 20061025
  Transmission Date: 20110219
  Serious: No
  Sender: FDA-Public Use
  Company Number: US-PFIZER INC-2006132106

PATIENT
  Sex: Female
  Weight: 95.25 kg

DRUGS (4)
  1. CHANTIX [Suspect]
     Indication: SMOKING CESSATION THERAPY
     Route: 048
     Dates: start: 20061020
  2. ALBUTEROL [Concomitant]
     Route: 055
  3. FLONASE [Concomitant]
  4. ANTIBIOTICS [Concomitant]

REACTIONS (4)
  - ANXIETY [None]
  - CARDIAC DISORDER [None]
  - HEADACHE [None]
  - HYPOAESTHESIA ORAL [None]
